FAERS Safety Report 14292676 (Version 1)
Quarter: 2017Q4

REPORT INFORMATION
  Report Type: Spontaneous
  Country: GB (occurrence: GB)
  Receive Date: 20171215
  Receipt Date: 20171215
  Transmission Date: 20180321
  Serious: Yes (Hospitalization, Other)
  Sender: FDA-Public Use
  Company Number: GB-BAYER-2017-236770

PATIENT

DRUGS (1)
  1. ACETYLSALICYLIC ACID({=100 MG) [Suspect]
     Active Substance: ASPIRIN
     Dosage: FROM 12 WEEKS GESTATION
     Route: 064

REACTIONS (6)
  - Apgar score low [None]
  - Foetal-maternal haemorrhage [None]
  - ABO haemolytic disease of newborn [None]
  - Foetal hypokinesia [None]
  - Blood incompatibility haemolytic anaemia of newborn [None]
  - Foetal exposure during pregnancy [None]
